FAERS Safety Report 4654157-8 (Version None)
Quarter: 2005Q2

REPORT INFORMATION
  Report Type: 
  Country: None (occurrence: None)
  Receive Date: 20050404
  Receipt Date: 20041202
  Transmission Date: 20051028
  Serious: No
  Sender: FDA-Public Use
  Company Number: USA041286193

PATIENT
  Age: 36 Year
  Sex: Male

DRUGS (3)
  1. CYMBALTA (DULOEXTINE HYDROCHLORIDE) [Suspect]
     Dosage: 60 MG DAY
  2. VIAGRA [Concomitant]
  3. LEVITRA [Concomitant]

REACTIONS (4)
  - ANORGASMIA [None]
  - HAEMORRHAGE URINARY TRACT [None]
  - ORGASM ABNORMAL [None]
  - SEMEN ABNORMAL [None]
